FAERS Safety Report 24642791 (Version 1)
Quarter: 2024Q4

REPORT INFORMATION
  Report Type: Spontaneous
  Country: US (occurrence: US)
  Receive Date: 20241120
  Receipt Date: 20241120
  Transmission Date: 20250115
  Serious: No
  Sender: LEO PHARM
  Company Number: US-LEO Pharma-375066

PATIENT
  Age: 75 Year
  Sex: Male

DRUGS (5)
  1. ADBRY [Suspect]
     Active Substance: TRALOKINUMAB-LDRM
     Indication: Dermatitis atopic
     Route: 058
  2. DILTIAZEM HC [Concomitant]
     Indication: Product used for unknown indication
  3. NEXIUM CPD [Concomitant]
     Indication: Product used for unknown indication
  4. CLARITIN TAB [Concomitant]
     Indication: Product used for unknown indication
  5. PRAVASTATIN [Concomitant]
     Active Substance: PRAVASTATIN
     Indication: Product used for unknown indication

REACTIONS (5)
  - Dry skin [Unknown]
  - Injection site pain [Unknown]
  - Pruritus [Unknown]
  - Dry skin [Unknown]
  - Sleep disorder [Unknown]
